FAERS Safety Report 5808746-5 (Version None)
Quarter: 2008Q3

REPORT INFORMATION
  Report Type: 
  Country: None (occurrence: None)
  Receive Date: 20080714
  Receipt Date: 20080708
  Transmission Date: 20090109
  Serious: Yes (Hospitalization)
  Sender: FDA-Public Use
  Company Number: US-BRISTOL-MYERS SQUIBB COMPANY-14252944

PATIENT
  Age: 71 Year
  Sex: Male
  Weight: 61 kg

DRUGS (10)
  1. CETUXIMAB [Suspect]
     Indication: LARYNGEAL CANCER
     Dosage: INITIATED:21MAY08.
     Dates: start: 20080701, end: 20080701
  2. CISPLATIN [Suspect]
     Indication: LARYNGEAL CANCER
     Dates: start: 20080618, end: 20080618
  3. RADIATION THERAPY [Suspect]
     Indication: LARYNGEAL CANCER
  4. ATENOLOL [Concomitant]
  5. DIFLUCAN [Concomitant]
  6. DOXYCYCLINE HCL [Concomitant]
  7. DURAGESIC-100 [Concomitant]
  8. INSULIN [Concomitant]
  9. PRILOSEC [Concomitant]
  10. ZETIA [Concomitant]

REACTIONS (2)
  - DEEP VEIN THROMBOSIS [None]
  - DEHYDRATION [None]
